FAERS Safety Report 4923603-4 (Version None)
Quarter: 2006Q1

REPORT INFORMATION
  Report Type: 
  Country: None (occurrence: None)
  Receive Date: 20060221
  Receipt Date: 20060208
  Transmission Date: 20060701
  Serious: Yes (Death)
  Sender: FDA-Public Use
  Company Number: 2006019466

PATIENT
  Sex: Male

DRUGS (1)
  1. EPLERENONE (EPLERENONE) [Suspect]
     Indication: CARDIAC FAILURE
     Dosage: 25 MG

REACTIONS (1)
  - SUDDEN DEATH [None]
